FAERS Safety Report 5762136-2 (Version None)
Quarter: 2008Q2

REPORT INFORMATION
  Report Type: 
  Country: None (occurrence: None)
  Receive Date: 20080604
  Receipt Date: 20080526
  Transmission Date: 20081010
  Serious: Yes (Life-Threatening, Other)
  Sender: FDA-Public Use
  Company Number: 2007JP004975

PATIENT
  Age: 80 Year
  Sex: Female
  Weight: 41 kg

DRUGS (21)
  1. PROGRAF [Suspect]
     Indication: RHEUMATOID ARTHRITIS
     Dosage: 1 MG, UID/QD, ORAL; 2 MG/, UID/QD, ORAL; 3 MG, UID/QD, ORAL
     Route: 048
     Dates: start: 20070220, end: 20070319
  2. PROGRAF [Suspect]
     Indication: RHEUMATOID ARTHRITIS
     Dosage: 1 MG, UID/QD, ORAL; 2 MG/, UID/QD, ORAL; 3 MG, UID/QD, ORAL
     Route: 048
     Dates: start: 20070320, end: 20070416
  3. PROGRAF [Suspect]
     Indication: RHEUMATOID ARTHRITIS
     Dosage: 1 MG, UID/QD, ORAL; 2 MG/, UID/QD, ORAL; 3 MG, UID/QD, ORAL
     Route: 048
     Dates: start: 20070417, end: 20070822
  4. CELCOX(CELECOXIB) TABLET [Suspect]
     Indication: RHEUMATOID ARTHRITIS
     Dosage: 200 MG, BID, ORAL
     Route: 048
     Dates: start: 20070719, end: 20070822
  5. RIMATIL(BUCILLAMINE) TABLET [Suspect]
     Indication: RHEUMATOID ARTHRITIS
     Dosage: 100 MG, BID, ORAL
     Route: 048
     Dates: start: 20060718, end: 20070822
  6. RHEUMATREX [Suspect]
     Indication: RHEUMATOID ARTHRITIS
     Dosage: SEE IMAGE
     Route: 048
     Dates: start: 20061128, end: 20061219
  7. RHEUMATREX [Suspect]
     Indication: RHEUMATOID ARTHRITIS
     Dosage: SEE IMAGE
     Route: 048
     Dates: start: 20061220, end: 20070822
  8. PARIET (RABEPRAZOLE SODIUM) TABLET [Suspect]
     Indication: GASTRIC ULCER
     Dosage: 10 MG, UID/QD, ORAL; 6 MG, WEEKLY, ORAL
     Route: 048
     Dates: start: 20070527, end: 20070602
  9. PARIET (RABEPRAZOLE SODIUM) TABLET [Suspect]
     Indication: GASTRIC ULCER
     Dosage: 10 MG, UID/QD, ORAL; 6 MG, WEEKLY, ORAL
     Route: 048
     Dates: start: 20071226
  10. LEVOFLOXACIN [Suspect]
     Indication: PYELONEPHRITIS ACUTE
     Dosage: 100 MG, TID, ORAL
     Route: 048
     Dates: start: 20070619, end: 20070709
  11. ULCERLMIN(SUCRALFATE) FINE GRANULE [Suspect]
     Indication: GASTRIC ULCER
     Dosage: 1 G, TID, ORAL
     Route: 048
     Dates: start: 20070527, end: 20070602
  12. PERINDOPRIL ERBUMINE [Concomitant]
  13. ADALAT [Concomitant]
  14. LIPIDIL [Concomitant]
  15. SM POWDER [Concomitant]
  16. SELBEX (TEPRENONE) [Concomitant]
  17. VOLTAREN [Concomitant]
  18. PREDONINE (PREDNISOLONE) [Concomitant]
  19. MEROPEN (MEROPENEM) [Concomitant]
  20. PREDOPA (DOPAMINE HYDROCHLORIDE) [Concomitant]
  21. SULFAMETHOXAZOLE AND TRIMETHOPRIM [Concomitant]

REACTIONS (24)
  - ABDOMINAL PAIN UPPER [None]
  - ACUTE RESPIRATORY FAILURE [None]
  - ALANINE AMINOTRANSFERASE INCREASED [None]
  - ANAEMIA [None]
  - ASPARTATE AMINOTRANSFERASE INCREASED [None]
  - ATRIAL FIBRILLATION [None]
  - BACK PAIN [None]
  - CHOLECYSTITIS ACUTE [None]
  - CONDITION AGGRAVATED [None]
  - EOSINOPHIL COUNT INCREASED [None]
  - HEPATIC FUNCTION ABNORMAL [None]
  - HYPERKALAEMIA [None]
  - LUNG CONSOLIDATION [None]
  - LUNG DISORDER [None]
  - MALAISE [None]
  - OXYGEN SATURATION DECREASED [None]
  - PERICARDIAL EFFUSION [None]
  - PLEURAL EFFUSION [None]
  - PNEUMOCYSTIS JIROVECI PNEUMONIA [None]
  - PYELONEPHRITIS ACUTE [None]
  - SHOCK [None]
  - TREMOR [None]
  - VIRAL INFECTION [None]
  - VOMITING [None]
